FAERS Safety Report 7033361-8 (Version None)
Quarter: 2010Q4

REPORT INFORMATION
  Report Type: 
  Country: None (occurrence: None)
  Receive Date: 20101005
  Receipt Date: 20100920
  Transmission Date: 20110411
  Serious: Yes (Other)
  Sender: FDA-Public Use
  Company Number: 2010S1000340

PATIENT
  Age: 55 Year
  Sex: Female
  Weight: 61.24 kg

DRUGS (12)
  1. DARVON [Suspect]
     Dosage: ; PO
     Route: 048
  2. DARVOCET-N 100 [Suspect]
     Dosage: ; PO
     Route: 048
  3. ZOLPIDEM TARTRATE [Suspect]
     Indication: INSOMNIA
     Dosage: 5 MG; ; PO
     Route: 048
  4. HYDROCODONE [Suspect]
  5. FUROSEMIDE [Suspect]
  6. DESALKYLFLURAZEPAM [Suspect]
  7. ALCOHOL [Suspect]
  8. TEMAZEPAM [Suspect]
  9. TRAZODONE [Suspect]
  10. ACETAMINOPHEN + DIPHENHYDRAMINE [Suspect]
  11. SYNTHROID [Concomitant]
  12. PROTONIX [Concomitant]

REACTIONS (8)
  - AMNESIA [None]
  - BLOOD ALCOHOL INCREASED [None]
  - DISORIENTATION [None]
  - FEELING ABNORMAL [None]
  - IMPRISONMENT [None]
  - LEGAL PROBLEM [None]
  - ROAD TRAFFIC ACCIDENT [None]
  - TOXICOLOGIC TEST ABNORMAL [None]
